FAERS Safety Report 18653874 (Version 1)
Quarter: 2020Q4

REPORT INFORMATION
  Report Type: Spontaneous
  Country: US (occurrence: US)
  Receive Date: 20201222
  Receipt Date: 20201222
  Transmission Date: 20210114
  Serious: Yes (Disabling)
  Sender: FDA-Public Use
  Company Number: None

PATIENT
  Age: 69 Year
  Sex: Female

DRUGS (9)
  1. SENNAKOT-S [Concomitant]
  2. PORTOCATH [Concomitant]
  3. LENVIMA [Concomitant]
     Active Substance: LENVATINIB
  4. PEPCID COMPLETE [Concomitant]
     Active Substance: CALCIUM CARBONATE\FAMOTIDINE\MAGNESIUM HYDROXIDE
  5. MULTIVITAMINS [Concomitant]
     Active Substance: VITAMINS
  6. KLOR-CON [Suspect]
     Active Substance: POTASSIUM CHLORIDE
     Indication: BLOOD POTASSIUM DECREASED
     Route: 048
     Dates: start: 20201207, end: 20201222
  7. LEVOTHYROXIN [Concomitant]
     Active Substance: LEVOTHYROXINE
  8. KEYTRUDA [Concomitant]
     Active Substance: PEMBROLIZUMAB
  9. VITAMIN D [Concomitant]
     Active Substance: VITAMIN D NOS

REACTIONS (3)
  - Product residue present [None]
  - Blood potassium decreased [None]
  - Drug ineffective [None]

NARRATIVE: CASE EVENT DATE: 20201214
